FAERS Safety Report 12233630 (Version 1)
Quarter: 2016Q2

REPORT INFORMATION
  Report Type: Spontaneous
  Country: US (occurrence: US)
  Receive Date: 20160404
  Receipt Date: 20160404
  Transmission Date: 20160815
  Serious: No
  Sender: FDA-Public Use
  Company Number: US-BAYER-2016-056727

PATIENT
  Age: 60 Year
  Sex: Female
  Weight: 158.73 kg

DRUGS (1)
  1. ZEGERID OTC CAPSULES [Suspect]
     Active Substance: OMEPRAZOLE\SODIUM BICARBONATE
     Indication: IMPAIRED GASTRIC EMPTYING
     Dosage: 1 DF, QOD
     Route: 048

REACTIONS (4)
  - Muscle spasms [None]
  - Abdominal distension [None]
  - Product use issue [None]
  - Expired product administered [None]

NARRATIVE: CASE EVENT DATE: 20160317
